FAERS Safety Report 10712273 (Version 1)
Quarter: 2015Q1

REPORT INFORMATION
  Report Type: Spontaneous
  Country: CA (occurrence: CA)
  Receive Date: 20150115
  Receipt Date: 20150115
  Transmission Date: 20150721
  Serious: Yes (Hospitalization)
  Sender: FDA-Public Use
  Company Number: CA-ROCHE-1431674

PATIENT
  Sex: Female

DRUGS (9)
  1. TRAMADOL HYDROCHLORIDE. [Concomitant]
     Active Substance: TRAMADOL HYDROCHLORIDE
     Route: 065
  2. RITUXAN [Suspect]
     Active Substance: RITUXIMAB
     Indication: RHEUMATOID ARTHRITIS
     Dosage: THERAPY DURATION: 4.0 YEARS
     Route: 042
  3. VITAMIN B12 [Concomitant]
     Active Substance: CYANOCOBALAMIN
     Route: 065
  4. DIOVAN [Concomitant]
     Active Substance: VALSARTAN
     Route: 065
  5. PROZAC [Concomitant]
     Active Substance: FLUOXETINE HYDROCHLORIDE
     Route: 065
  6. SULINDAC. [Concomitant]
     Active Substance: SULINDAC
     Route: 065
  7. ARAVA [Suspect]
     Active Substance: LEFLUNOMIDE
     Indication: RHEUMATOID ARTHRITIS
     Route: 065
  8. FOLIC ACID. [Concomitant]
     Active Substance: FOLIC ACID
  9. METHOTREXATE [Concomitant]
     Active Substance: METHOTREXATE

REACTIONS (5)
  - Abdominal pain [Unknown]
  - Gingival disorder [Unknown]
  - Hepatic enzyme increased [Unknown]
  - Malaise [Unknown]
  - Drug ineffective [Unknown]
